FAERS Safety Report 8092904-6 (Version None)
Quarter: 2012Q1

REPORT INFORMATION
  Report Type: 
  Country: None (occurrence: None)
  Receive Date: 20120128
  Receipt Date: 20110802
  Transmission Date: 20120608
  Serious: No
  Sender: FDA-Public Use
  Company Number: US-ABBOTT-11P-163-0844195-00

PATIENT
  Sex: Female
  Weight: 81.72 kg

DRUGS (3)
  1. HUMIRA [Suspect]
     Indication: RHEUMATOID ARTHRITIS
     Dates: start: 20110101, end: 20110501
  2. HUMIRA [Suspect]
     Dates: start: 20110731
  3. METHOTREXATE [Concomitant]
     Indication: RHEUMATOID ARTHRITIS

REACTIONS (7)
  - FACIAL PAIN [None]
  - PNEUMONIA [None]
  - PAIN [None]
  - FUNGAL INFECTION [None]
  - PRURITUS [None]
  - ORAL CANDIDIASIS [None]
  - RASH [None]
